FAERS Safety Report 12238168 (Version 1)
Quarter: 2016Q2

REPORT INFORMATION
  Report Type: Spontaneous
  Country: US (occurrence: US)
  Receive Date: 20160405
  Receipt Date: 20160405
  Transmission Date: 20160815
  Serious: Yes (Hospitalization, Other)
  Sender: FDA-Public Use
  Company Number: US-GLAXOSMITHKLINE-US2016GSK045395

PATIENT
  Sex: Male
  Weight: 92.52 kg

DRUGS (2)
  1. ALBUTEROL. [Suspect]
     Active Substance: ALBUTEROL
     Indication: DYSPNOEA
     Dosage: 2 PUFF(S), PRN
  2. ATROVENT [Suspect]
     Active Substance: IPRATROPIUM BROMIDE
     Indication: DYSPNOEA
     Dosage: 2 PUFF(S), PRN

REACTIONS (4)
  - Gait disturbance [Unknown]
  - Pneumothorax spontaneous [Unknown]
  - Bullous lung disease [Unknown]
  - Chronic obstructive pulmonary disease [Unknown]
